FAERS Safety Report 23651696 (Version 1)
Quarter: 2024Q1

REPORT INFORMATION
  Report Type: Spontaneous
  Country: NL (occurrence: NL)
  Receive Date: 20240320
  Receipt Date: 20240320
  Transmission Date: 20240410
  Serious: Yes (Hospitalization)
  Sender: FDA-Public Use
  Company Number: None

PATIENT
  Age: 36 Year
  Sex: Male
  Weight: 95.6 kg

DRUGS (11)
  1. PREDNISONE [Suspect]
     Active Substance: PREDNISONE
     Indication: Asthma
     Dosage: 30MG ONCE A DAY, BRAND NAME NOT SPECIFIED.
     Route: 065
     Dates: start: 20220216, end: 20220301
  2. ACETAMINOPHEN [Concomitant]
     Active Substance: ACETAMINOPHEN
     Indication: Product used for unknown indication
     Dosage: BRAND NAME NOT SPECIFIED
     Route: 065
  3. ALBUTEROL\IPRATROPIUM [Concomitant]
     Active Substance: ALBUTEROL\IPRATROPIUM
     Indication: Product used for unknown indication
     Dosage: NEBULISER FLUID; 1/0.2 MG/ML (MILLIGRAM PER MILLILITER), NEBULIZER 1/0.2MG/ML / COMBIVENT UNIT DO...
     Route: 065
  4. FENOTEROL\IPRATROPIUM [Concomitant]
     Active Substance: FENOTEROL\IPRATROPIUM
     Indication: Product used for unknown indication
     Dosage: AEROSOL, 50/20 ?G/DOSE (MICROGRAMS PER DOSE), AEROSOL 50/20UG/DO / BERODUAL CFKVR AEROSOL SPRAY 2...
     Route: 065
  5. FLUIMUCIL [Concomitant]
     Active Substance: ACETYLCYSTEINE
     Indication: Product used for unknown indication
     Dosage: ACETYLCYSTEINE NEBULIZER 100MG/ML / INHVLST 100MG/ML AMPOULE 4ML
     Route: 065
  6. COLISTIN [Concomitant]
     Active Substance: COLISTIN
     Indication: Product used for unknown indication
     Dosage: BRAND NAME NOT SPECIFIED
     Route: 065
  7. KALYDECO [Concomitant]
     Active Substance: IVACAFTOR
     Indication: Product used for unknown indication
     Dosage: IVACAFTOR TABLET 150MG / KALYDECO TABLET FILM COVER 150MG
     Route: 065
  8. ELEXACAFTOR\IVACAFTOR\TEZACAFTOR [Suspect]
     Active Substance: ELEXACAFTOR\IVACAFTOR\TEZACAFTOR
     Indication: Cystic fibrosis
     Dosage: 1DD1, 75/50/100MG / 75/50/100MG
     Route: 065
     Dates: start: 20220111, end: 20220425
  9. AMYLA/LIPA/PROTEA [Concomitant]
     Indication: Product used for unknown indication
     Dosage: 8000/10000/600 FE, /LIPA/PROTEA CAP MSR (CREON+CREON 10000) / BRAND NAME NOT SPECIFIED
     Route: 065
  10. FLUCLOXACILLIN [Concomitant]
     Active Substance: FLUCLOXACILLIN
     Indication: Product used for unknown indication
     Dosage: BRAND NAME NOT SPECIFIED
     Route: 065
  11. PIPERACILLIN AND TAZOBACTAM [Concomitant]
     Active Substance: PIPERACILLIN SODIUM\TAZOBACTAM SODIUM
     Indication: Product used for unknown indication
     Dosage: INFUSION FLUID, 40/5 MG/ML (MILLIGRAM PER MILLILITER), INFVLST / BRAND NAME NOT SPECIFIED
     Route: 065

REACTIONS (1)
  - Mania [Recovering/Resolving]
